FAERS Safety Report 9521203 (Version 1)
Quarter: 2013Q1

REPORT INFORMATION
  Report Type: Spontaneous
  Country: US (occurrence: None)
  Receive Date: 20130305
  Receipt Date: 20130305
  Transmission Date: 20140127
  Serious: Yes (Other)
  Sender: FDA-Public Use
  Company Number: 123-21880-12073071

PATIENT
  Age: 69 Year
  Sex: Female

DRUGS (1)
  1. REVLIMID [Suspect]
     Indication: 5Q MINUS SYNDROME
     Dosage: 10 MG, 28I IN 28 D, PO
     Route: 048
     Dates: start: 20110812, end: 201112

REACTIONS (6)
  - Haemoglobin decreased [None]
  - Myelodysplastic syndrome [None]
  - Disease progression [None]
  - Neuropathy peripheral [None]
  - Fatigue [None]
  - Drug ineffective [None]
